FAERS Safety Report 11070237 (Version 1)
Quarter: 2015Q2

REPORT INFORMATION
  Report Type: Spontaneous
  Country: US (occurrence: US)
  Receive Date: 20150427
  Receipt Date: 20150427
  Transmission Date: 20150821
  Serious: No
  Sender: FDA-Public Use
  Company Number: US-MALLINCKRODT-T201403934

PATIENT
  Age: 35 Year
  Sex: Female

DRUGS (1)
  1. HYDROCODONE/ACETAMINOPHEN [Suspect]
     Active Substance: ACETAMINOPHEN\HYDROCODONE
     Indication: AUTOIMMUNE DISORDER
     Dosage: 1 OR 2 TABLETS A DAY AS NEEDED
     Route: 048
     Dates: start: 20141016

REACTIONS (3)
  - Product quality issue [Unknown]
  - Migraine [Recovered/Resolved]
  - Abdominal discomfort [Recovered/Resolved]

NARRATIVE: CASE EVENT DATE: 20141016
